FAERS Safety Report 17446472 (Version 2)
Quarter: 2020Q1

REPORT INFORMATION
  Report Type: Report from Study
  Country: US (occurrence: US)
  Receive Date: 20200221
  Receipt Date: 20200306
  Transmission Date: 20200409
  Serious: No
  Sender: FDA-Public Use
  Company Number: US-ACTELION-A-NJ2018-168881

PATIENT
  Sex: Female
  Weight: 64.4 kg

DRUGS (2)
  1. TADALAFIL. [Concomitant]
     Active Substance: TADALAFIL
  2. OPSUMIT [Suspect]
     Active Substance: MACITENTAN
     Indication: PULMONARY ARTERIAL HYPERTENSION
     Dosage: 10 MG, QD
     Route: 048

REACTIONS (4)
  - Pulmonary arterial hypertension [Unknown]
  - Condition aggravated [Unknown]
  - Malaise [Unknown]
  - Therapeutic response decreased [Unknown]
